FAERS Safety Report 6885478-6 (Version None)
Quarter: 2010Q3

REPORT INFORMATION
  Report Type: 
  Country: None (occurrence: None)
  Receive Date: 20100729
  Receipt Date: 20090122
  Transmission Date: 20110219
  Serious: No
  Sender: FDA-Public Use
  Company Number: US-PFIZER INC-2008099635

PATIENT
  Sex: Female
  Weight: 59 kg

DRUGS (5)
  1. CELEBREX [Suspect]
     Indication: BACK DISORDER
     Dates: start: 20081101
  2. VALSARTAN [Concomitant]
     Indication: HYPERTENSION
  3. SYNTHROID [Concomitant]
  4. VITAMINS [Concomitant]
  5. ADVIL LIQUI-GELS [Concomitant]

REACTIONS (1)
  - DRUG INEFFECTIVE [None]
